FAERS Safety Report 6146969-9 (Version None)
Quarter: 2009Q2

REPORT INFORMATION
  Report Type: 
  Country: None (occurrence: None)
  Receive Date: 20090403
  Receipt Date: 20090326
  Transmission Date: 20091009
  Serious: Yes (Other)
  Sender: FDA-Public Use
  Company Number: 2009AL001794

PATIENT
  Age: 11 Year
  Sex: Male

DRUGS (3)
  1. CARBAMAZEPINE [Suspect]
     Indication: EPILEPSY
  2. LAMOTRIGINE [Concomitant]
  3. VALPROATE SODIUM [Concomitant]

REACTIONS (9)
  - EPIPHYSEAL DISORDER [None]
  - EPIPHYSIOLYSIS [None]
  - HYPERPARATHYROIDISM SECONDARY [None]
  - HYPOTHYROIDISM [None]
  - JOINT CONTRACTURE [None]
  - JOINT DISLOCATION [None]
  - KNEE DEFORMITY [None]
  - RICKETS [None]
  - TREATMENT NONCOMPLIANCE [None]
